FAERS Safety Report 9647566 (Version 1)
Quarter: 2013Q4

REPORT INFORMATION
  Report Type: Spontaneous
  Country: US (occurrence: US)
  Receive Date: 20131028
  Receipt Date: 20131028
  Transmission Date: 20140711
  Serious: Yes (Hospitalization)
  Sender: FDA-Public Use
  Company Number: US-MERCK-1310USA011045

PATIENT
  Sex: Female

DRUGS (2)
  1. SAPHRIS [Suspect]
     Indication: BIPOLAR DISORDER
     Route: 048
  2. PAXIL [Concomitant]

REACTIONS (3)
  - Paranoia [Unknown]
  - Hypochondriasis [Unknown]
  - Weight increased [Unknown]
